FAERS Safety Report 8265977-5 (Version None)
Quarter: 2012Q2

REPORT INFORMATION
  Report Type: 
  Country: None (occurrence: None)
  Receive Date: 20120403
  Receipt Date: 20120316
  Transmission Date: 20120825
  Serious: Yes (Other)
  Sender: FDA-Public Use
  Company Number: US-2012-10024

PATIENT
  Age: 43 Year
  Sex: Male

DRUGS (6)
  1. ATENOLOL [Concomitant]
  2. SIMVASTATIN [Concomitant]
  3. AMLODIPINE [Concomitant]
  4. DOXAZOSIN (DOXAZOSIN MESILATE) [Concomitant]
  5. CANDESARTAN CILEXETIL [Concomitant]
  6. SAMSCA [Suspect]
     Indication: CONGENITAL CYSTIC KIDNEY DISEASE
     Dosage: 120 MG MILLIGRAM(S), DAILY DOSE, ORAL
     Route: 048
     Dates: start: 20110930

REACTIONS (8)
  - ASPARTATE AMINOTRANSFERASE INCREASED [None]
  - GAMMA-GLUTAMYLTRANSFERASE INCREASED [None]
  - WHITE BLOOD CELL COUNT INCREASED [None]
  - MEAN CELL HAEMOGLOBIN INCREASED [None]
  - ALANINE AMINOTRANSFERASE INCREASED [None]
  - MEAN CELL VOLUME INCREASED [None]
  - NEUTROPHIL COUNT INCREASED [None]
  - RED BLOOD CELL COUNT DECREASED [None]
